FAERS Safety Report 4264793-9 (Version None)
Quarter: 2004Q1

REPORT INFORMATION
  Report Type: 
  Country: None (occurrence: None)
  Receive Date: 20040105
  Receipt Date: 20031219
  Transmission Date: 20041129
  Serious: Yes (Hospitalization)
  Sender: FDA-Public Use
  Company Number: 214924

PATIENT
  Age: 16 Year
  Sex: Male
  Weight: 41.3 kg

DRUGS (5)
  1. NORDITROPIN [Suspect]
     Indication: CHONDRODYSTROPHY
     Dosage: SEE IMAGE
     Route: 058
     Dates: start: 20001129, end: 20020326
  2. NORDITROPIN [Suspect]
     Indication: CHONDRODYSTROPHY
     Dosage: SEE IMAGE
     Route: 058
     Dates: start: 20020227, end: 20020728
  3. NORDITROPIN [Suspect]
     Indication: CHONDRODYSTROPHY
     Dosage: SEE IMAGE
     Route: 058
     Dates: start: 20020729, end: 20030427
  4. NORDITROPIN [Suspect]
     Indication: CHONDRODYSTROPHY
     Dosage: SEE IMAGE
     Route: 058
     Dates: start: 20030428, end: 20030925
  5. SUPRECUR (BUSERELIN ACETATE) [Concomitant]

REACTIONS (2)
  - ARTHRALGIA [None]
  - GENU VARUM [None]
